FAERS Safety Report 24946530 (Version 1)
Quarter: 2025Q1

REPORT INFORMATION
  Report Type: Spontaneous
  Country: US (occurrence: US)
  Receive Date: 20250210
  Receipt Date: 20250210
  Transmission Date: 20250408
  Serious: No
  Sender: ROCHE
  Company Number: US-ROCHE-10000201461

PATIENT
  Sex: Female

DRUGS (18)
  1. ACTEMRA ACTPEN [Suspect]
     Active Substance: TOCILIZUMAB
     Indication: Rheumatoid arthritis
     Route: 058
  2. ASPIRIN POW [Concomitant]
  3. ESCITALOPRAM POW [Concomitant]
  4. FOLIC ACID POW [Concomitant]
  5. LEVOTHYROXINE [Concomitant]
     Active Substance: LEVOTHYROXINE
  6. METFORMIN HYDROCHLORIDE [Concomitant]
     Active Substance: METFORMIN HYDROCHLORIDE
  7. METHOTREXATE [Concomitant]
     Active Substance: METHOTREXATE
  8. NITROFURANTO POW [Concomitant]
  9. ROSUVASTATIN POW [Concomitant]
  10. VALSARTAN [Concomitant]
     Active Substance: VALSARTAN
  11. TRIAMTERENE/HYDROCHLOROTH [Concomitant]
  12. DIOVAN [Concomitant]
     Active Substance: VALSARTAN
  13. METOPROLOL TARTRATE [Concomitant]
     Active Substance: METOPROLOL TARTRATE
  14. CHLORHEXIDINE GLUCONATE [Concomitant]
     Active Substance: CHLORHEXIDINE GLUCONATE
  15. RESTASIS [Concomitant]
     Active Substance: CYCLOSPORINE
  16. MECLIZINE HYDROCHLORIDE [Concomitant]
     Active Substance: MECLIZINE HYDROCHLORIDE
  17. LIDOCAINE\PRILOCAINE [Concomitant]
     Active Substance: LIDOCAINE\PRILOCAINE
  18. AZITHROMYCIN [Concomitant]
     Active Substance: AZITHROMYCIN

REACTIONS (2)
  - Gait inability [Not Recovered/Not Resolved]
  - Depressed mood [Not Recovered/Not Resolved]
